FAERS Safety Report 11625793 (Version 3)
Quarter: 2015Q4

REPORT INFORMATION
  Report Type: Spontaneous
  Country: US (occurrence: US)
  Receive Date: 20151013
  Receipt Date: 20151229
  Transmission Date: 20160304
  Serious: No
  Sender: FDA-Public Use
  Company Number: US-PFIZER INC-2015327700

PATIENT
  Age: 50 Year
  Sex: Female
  Weight: 70 kg

DRUGS (2)
  1. ADVIL [Suspect]
     Active Substance: IBUPROFEN
     Indication: HEADACHE
     Dosage: UNK, AS NEEDED (PRN, 200-400 MG )
     Route: 048
     Dates: start: 201508
  2. ADVIL [Suspect]
     Active Substance: IBUPROFEN
     Dosage: 400 MG, UNK
     Dates: start: 201507, end: 20150708

REACTIONS (1)
  - Drug ineffective [Recovered/Resolved]

NARRATIVE: CASE EVENT DATE: 201507
